FAERS Safety Report 5466745-X (Version None)
Quarter: 2007Q3

REPORT INFORMATION
  Report Type: 
  Country: None (occurrence: None)
  Receive Date: 20070920
  Receipt Date: 20070907
  Transmission Date: 20080115
  Serious: Yes (Hospitalization)
  Sender: FDA-Public Use
  Company Number: DSJ-2007-06748

PATIENT
  Age: 61 Year
  Sex: Male
  Weight: 60 kg

DRUGS (8)
  1. OLMESARTAN MEDOXOMIL [Suspect]
     Indication: ESSENTIAL HYPERTENSION
     Dosage: 20 MG (20 MG, 1 IN 1 D), PER ORAL
     Route: 048
     Dates: start: 20060529
  2. FLUITRAN (TRICHLORMETHIAZIDE) (TRICHLORMETHIAZIDE) [Suspect]
     Dosage: 0.5 MG (0.5 MG, 1 IN 1 D), PER ORAL
     Route: 048
     Dates: start: 20060515, end: 20060714
  3. LARILUDON (ENALAPRIL MALEATE) (ENALAPRIL MALEATE) [Concomitant]
  4. BAYASPIRIN (ACETYLSALICYLIC ACID) (ACETYLSALICYLIC ACID) [Concomitant]
  5. LOCHOL (FLUVASTATIN SODIUM) (FLUVASTATIN SODIUM) [Concomitant]
  6. ZYLORIC (ALLOPURINOL) (ALLOPURINOL) [Concomitant]
  7. VERAPAMIL HYDROCHLORIDE [Concomitant]
  8. GASTER D (FAMOTIDINE) (FAMOTIDINE) [Concomitant]

REACTIONS (1)
  - CEREBRAL INFARCTION [None]
